FAERS Safety Report 9120964 (Version 2)
Quarter: 2014Q1

REPORT INFORMATION
  Report Type: Report from Study
  Country: US (occurrence: US)
  Receive Date: 20130226
  Receipt Date: 20140214
  Transmission Date: 20141002
  Serious: Yes (Hospitalization)
  Sender: FDA-Public Use
  Company Number: US-JNJFOC-20130212753

PATIENT
  Age: 28 Year
  Sex: Female
  Weight: 96 kg

DRUGS (4)
  1. USTEKINUMAB [Suspect]
     Indication: PSORIASIS
     Route: 058
     Dates: start: 20120523, end: 20130313
  2. USTEKINUMAB [Suspect]
     Indication: PSORIASIS
     Route: 058
     Dates: start: 201001
  3. CORTICOSTEROIDS [Suspect]
     Indication: PSORIASIS
     Route: 065
  4. OTHER THERAPEUTIC MEDICATIONS [Concomitant]

REACTIONS (2)
  - Cellulitis [Recovered/Resolved]
  - Otitis externa [Unknown]
